FAERS Safety Report 21170983 (Version 3)
Quarter: 2022Q3

REPORT INFORMATION
  Report Type: Report from Study
  Country: US (occurrence: None)
  Receive Date: 20220804
  Receipt Date: 20220816
  Transmission Date: 20221027
  Serious: Yes (Hospitalization)
  Sender: FDA-Public Use
  Company Number: US-ROCHE-3148413

PATIENT
  Age: 80 Year
  Sex: Male
  Weight: 100.1 kg

DRUGS (9)
  1. POLATUZUMAB VEDOTIN [Suspect]
     Active Substance: POLATUZUMAB VEDOTIN
     Indication: Non-Hodgkin^s lymphoma
     Route: 042
     Dates: start: 20220722
  2. ACYCLOVIR [Concomitant]
     Active Substance: ACYCLOVIR
     Indication: Non-Hodgkin^s lymphoma
     Route: 048
     Dates: start: 20220503
  3. ALLOPURINOL [Concomitant]
     Active Substance: ALLOPURINOL
     Indication: Non-Hodgkin^s lymphoma
     Route: 048
     Dates: start: 20220723
  4. ASPIRIN [Concomitant]
     Active Substance: ASPIRIN
     Indication: Non-Hodgkin^s lymphoma
     Route: 048
     Dates: start: 20220726
  5. ATORVASTATIN [Concomitant]
     Active Substance: ATORVASTATIN
     Indication: Non-Hodgkin^s lymphoma
     Route: 048
     Dates: start: 20220726
  6. CARVEDILOL [Concomitant]
     Active Substance: CARVEDILOL
     Indication: Non-Hodgkin^s lymphoma
     Route: 048
     Dates: start: 20220725
  7. GABAPENTIN [Concomitant]
     Active Substance: GABAPENTIN
     Indication: Non-Hodgkin^s lymphoma
     Route: 048
     Dates: start: 20220722
  8. ACETAMINOPHEN\HYDROCODONE [Concomitant]
     Active Substance: ACETAMINOPHEN\HYDROCODONE
     Indication: Non-Hodgkin^s lymphoma
     Dosage: 1 TABLET
     Route: 048
     Dates: start: 20220726
  9. LISINOPRIL [Concomitant]
     Active Substance: LISINOPRIL
     Indication: Non-Hodgkin^s lymphoma
     Route: 048
     Dates: start: 20200923

REACTIONS (1)
  - Cytokine release syndrome [Not Recovered/Not Resolved]

NARRATIVE: CASE EVENT DATE: 20220723
